FAERS Safety Report 22201058 (Version 1)
Quarter: 2023Q2

REPORT INFORMATION
  Report Type: Spontaneous
  Country: IT (occurrence: IT)
  Receive Date: 20230412
  Receipt Date: 20230412
  Transmission Date: 20230722
  Serious: Yes (Hospitalization)
  Sender: FDA-Public Use
  Company Number: None

PATIENT
  Age: 67 Year
  Sex: Female
  Weight: 74 kg

DRUGS (2)
  1. LOSARTAN [Suspect]
     Active Substance: LOSARTAN
     Indication: Hypertension
     Dosage: 50 MG, (TOTAL), (DOSAGGIO: 50UNITA DI MISURA: MILLIGRAMMI FREQUENZA SOMMINISTRAZIONE: TOTALE VIA SOM
     Route: 048
  2. BISOPROLOL FUMARATE [Suspect]
     Active Substance: BISOPROLOL FUMARATE
     Indication: Hypertension
     Dosage: 10 MG, (TOTAL), (DOSAGGIO: 10UNITA DI MISURA: MILLIGRAMMI FREQUENZA SOMMINISTRAZIONE: TOTALE VIA SOM
     Route: 048

REACTIONS (4)
  - Headache [Recovering/Resolving]
  - Asthenia [Recovering/Resolving]
  - Vertigo [Recovering/Resolving]
  - Product administration error [Recovering/Resolving]

NARRATIVE: CASE EVENT DATE: 20230123
